FAERS Safety Report 12689972 (Version 1)
Quarter: 2016Q3

REPORT INFORMATION
  Report Type: Report from Study
  Country: MX (occurrence: MX)
  Receive Date: 20160826
  Receipt Date: 20160826
  Transmission Date: 20161109
  Serious: Yes (Death, Hospitalization, Other)
  Sender: FDA-Public Use
  Company Number: MX-BAYER-2016-156746

PATIENT
  Age: 64 Year
  Sex: Male

DRUGS (1)
  1. NEXAVAR [Suspect]
     Active Substance: SORAFENIB
     Indication: HEPATOCELLULAR CARCINOMA
     Dosage: 400 MG, BID
     Dates: start: 20151116, end: 201602

REACTIONS (7)
  - Nasopharyngitis [Not Recovered/Not Resolved]
  - Choking sensation [Not Recovered/Not Resolved]
  - Epistaxis [Recovering/Resolving]
  - Intestinal haemorrhage [Fatal]
  - Duodenal perforation [Recovering/Resolving]
  - Haematochezia [Recovering/Resolving]
  - Dehydration [Not Recovered/Not Resolved]

NARRATIVE: CASE EVENT DATE: 201512
